FAERS Safety Report 25664012 (Version 2)
Quarter: 2025Q3

REPORT INFORMATION
  Report Type: Spontaneous
  Country: US (occurrence: US)
  Receive Date: 20250811
  Receipt Date: 20250829
  Transmission Date: 20251021
  Serious: Yes (Other)
  Sender: PFIZER
  Company Number: US-PFIZER INC-202500159171

PATIENT
  Age: 56 Year
  Sex: Female

DRUGS (7)
  1. BEVACIZUMAB [Suspect]
     Active Substance: BEVACIZUMAB
     Indication: Colorectal cancer metastatic
     Dates: start: 202504
  2. BEVACIZUMAB [Suspect]
     Active Substance: BEVACIZUMAB
     Indication: Rectal adenocarcinoma
  3. LONSURF [Suspect]
     Active Substance: TIPIRACIL HYDROCHLORIDE\TRIFLURIDINE
     Indication: Colorectal cancer metastatic
  4. LONSURF [Suspect]
     Active Substance: TIPIRACIL HYDROCHLORIDE\TRIFLURIDINE
     Indication: Rectal adenocarcinoma
  5. LEUCOVORIN [Concomitant]
     Active Substance: LEUCOVORIN\LEUCOVORIN CALCIUM
     Dates: start: 202504
  6. FLUOROURACIL [Concomitant]
     Active Substance: FLUOROURACIL
     Dates: start: 202504
  7. OXALIPLATIN [Concomitant]
     Active Substance: OXALIPLATIN
     Dates: start: 202504

REACTIONS (3)
  - Colorectal cancer metastatic [Unknown]
  - Rectal adenocarcinoma [Unknown]
  - Malignant neoplasm progression [Unknown]

NARRATIVE: CASE EVENT DATE: 20250501
